FAERS Safety Report 4582227-1 (Version None)
Quarter: 2005Q1

REPORT INFORMATION
  Report Type: 
  Country: None (occurrence: None)
  Receive Date: 20050214
  Receipt Date: 20050201
  Transmission Date: 20050727
  Serious: Yes (Hospitalization)
  Sender: FDA-Public Use
  Company Number: GXKR2005IT00524

PATIENT
  Age: 79 Year
  Sex: Female

DRUGS (2)
  1. TICLOPIDINE (NGX) (TICLOPIDINE) [Suspect]
     Indication: ANTICOAGULANT THERAPY
     Dosage: 100 MG, BID
     Dates: start: 19990801
  2. PAROXETINE HCL [Concomitant]

REACTIONS (3)
  - MALAISE [None]
  - PANCYTOPENIA [None]
  - PYREXIA [None]
